FAERS Safety Report 21077870 (Version 1)
Quarter: 2022Q3

REPORT INFORMATION
  Report Type: Spontaneous
  Country: CN (occurrence: CN)
  Receive Date: 20220713
  Receipt Date: 20220713
  Transmission Date: 20221026
  Serious: Yes (Other)
  Sender: FDA-Public Use
  Company Number: None

PATIENT
  Age: 65 Year
  Sex: Female
  Weight: 60 kg

DRUGS (4)
  1. CYCLOPHOSPHAMIDE [Suspect]
     Active Substance: CYCLOPHOSPHAMIDE
     Indication: Breast cancer female
     Dosage: 960 MG, QD POWDER INJECTION, 1ST CHEMOTHERAPY- CYCLOPHOSPHAMIDE (960 MG) + NS (50ML)
     Route: 042
     Dates: start: 20220419, end: 20220419
  2. SODIUM CHLORIDE [Suspect]
     Active Substance: SODIUM CHLORIDE
     Indication: Medication dilution
     Dosage: 50 ML, QD 1ST CHEMOTHERAPY- CYCLOPHOSPHAMIDE (960 MG) + NS (50ML)
     Route: 042
     Dates: start: 20220419, end: 20220419
  3. SODIUM CHLORIDE [Suspect]
     Active Substance: SODIUM CHLORIDE
     Dosage: 100 ML, QD 1ST CHEMOTHERAPY- EPIRUBICIN HYDROCHLORIDE (137 MG) + NS (100ML)
     Route: 041
     Dates: start: 20220419, end: 20220419
  4. EPIRUBICIN [Suspect]
     Active Substance: EPIRUBICIN
     Indication: Breast cancer female
     Dosage: 137 MG, QD INJECTION, 1ST CHEMOTHERAPY- EPIRUBICIN HYDROCHLORIDE (137 MG) + NS (100ML)
     Route: 041
     Dates: start: 20220419, end: 20220419

REACTIONS (2)
  - White blood cell count decreased [Recovered/Resolved]
  - Agranulocytosis [Recovered/Resolved]

NARRATIVE: CASE EVENT DATE: 20220429
